FAERS Safety Report 5223299-0 (Version None)
Quarter: 2007Q1

REPORT INFORMATION
  Report Type: 
  Country: None (occurrence: None)
  Receive Date: 20070125
  Receipt Date: 20070122
  Transmission Date: 20070707
  Serious: Yes (Death)
  Sender: FDA-Public Use
  Company Number: 232503

PATIENT
  Age: 72 Year
  Sex: Male

DRUGS (4)
  1. RAPTIVA [Suspect]
     Indication: PSORIASIS
     Dosage: 1 MG/KG, 3/WEEK, SUBCUTANEOUS
     Route: 058
     Dates: start: 20050322, end: 20060801
  2. DAIVONEX (CALCIPOTRIENE) [Concomitant]
  3. DAIVOBET (BETAMETHASONE DIPROPIONATE, CALCIPOTRIENE) [Concomitant]
  4. UV THERAPY (PHOTOTHERAPY) [Concomitant]

REACTIONS (5)
  - ASCITES [None]
  - DYSPNOEA [None]
  - METASTASES TO LIVER [None]
  - METASTATIC BRONCHIAL CARCINOMA [None]
  - PRURITUS [None]
